FAERS Safety Report 6079437-3 (Version None)
Quarter: 2009Q1

REPORT INFORMATION
  Report Type: 
  Country: None (occurrence: None)
  Receive Date: 20090216
  Receipt Date: 20090205
  Transmission Date: 20090719
  Serious: Yes (Other)
  Sender: FDA-Public Use
  Company Number: PHHY2009BR04337

PATIENT
  Age: 64 Year
  Sex: Male

DRUGS (10)
  1. DIOVAN [Suspect]
     Indication: HYPERTENSION
     Dosage: 80 MG, QD
     Route: 048
     Dates: start: 20040101
  2. DIOVAN [Suspect]
     Dosage: 160 MG, QD
     Route: 048
  3. AMLODIPIN ^ORIFARM^ [Concomitant]
     Dosage: 5 MG, 1 TABLET A DAY
     Route: 048
  4. CAPTOPRIL [Concomitant]
     Dosage: 2 DF, TID
     Route: 048
  5. VENLAFAXINE HCL [Concomitant]
     Indication: DEPRESSION
     Dosage: 75 MG, 1 TABLET IN THE MORNING
     Route: 048
  6. NEOSALDINA [Concomitant]
     Indication: HEADACHE
     Dosage: UNK
  7. BENEFIBER [Concomitant]
     Dosage: UNK
  8. TYLENOL [Concomitant]
     Indication: HEADACHE
     Dosage: UNK
  9. CHARCOAL PREPARATIONS [Concomitant]
     Dosage: UNK
  10. BUSCOPAN COMP. [Concomitant]
     Dosage: UNK

REACTIONS (9)
  - BENIGN PROSTATIC HYPERPLASIA [None]
  - BLOOD ALKALINE PHOSPHATASE DECREASED [None]
  - DYSURIA [None]
  - HEADACHE [None]
  - HYPERTENSION [None]
  - INTERVERTEBRAL DISC PROTRUSION [None]
  - IRRITABILITY [None]
  - PHYSIOTHERAPY [None]
  - PROSTATIC OPERATION [None]
